FAERS Safety Report 25524879 (Version 2)
Quarter: 2025Q3

REPORT INFORMATION
  Report Type: Report from Study
  Country: US (occurrence: US)
  Receive Date: 20250707
  Receipt Date: 20250711
  Transmission Date: 20251021
  Serious: Yes (Death, Other)
  Sender: TEVA
  Company Number: US-TEVA-VS-3347878

PATIENT
  Age: 30 Year
  Sex: Male

DRUGS (6)
  1. FLUOROURACIL [Suspect]
     Active Substance: FLUOROURACIL
     Indication: Intestinal adenocarcinoma
     Route: 065
  2. DEXTROSE [Concomitant]
     Active Substance: DEXTROSE MONOHYDRATE
     Indication: Parenteral nutrition
     Dosage: 3.5G/KG
     Route: 051
  3. AMINO ACIDS, SOURCE UNSPECIFIED [Concomitant]
     Active Substance: AMINO ACIDS, SOURCE UNSPECIFIED
     Indication: Parenteral nutrition
     Dosage: 1.22 G/KG
     Route: 051
  4. SODIUM CHLORIDE [Concomitant]
     Active Substance: SODIUM CHLORIDE
     Indication: Parenteral nutrition
     Route: 051
  5. URSODIOL [Suspect]
     Active Substance: URSODIOL
     Indication: Parenteral nutrition associated liver disease
     Route: 048
  6. Papaver somniferum [Concomitant]
     Indication: Short-bowel syndrome
     Route: 065

REACTIONS (2)
  - Drug ineffective [Fatal]
  - Parenteral nutrition associated liver disease [Recovering/Resolving]
